FAERS Safety Report 17610969 (Version 1)
Quarter: 2020Q2

REPORT INFORMATION
  Report Type: Spontaneous
  Country: US (occurrence: US)
  Receive Date: 20200401
  Receipt Date: 20200401
  Transmission Date: 20200713
  Serious: No
  Sender: FDA-Public Use
  Company Number: US-HIKMA PHARMACEUTICALS USA INC.-US-H14001-19-05488

PATIENT
  Sex: Female

DRUGS (1)
  1. BUTORPHANOL [Suspect]
     Active Substance: BUTORPHANOL
     Indication: MIGRAINE
     Dosage: 1 SPRAY EVERY 4 HOURS AS NEEDED
     Route: 045

REACTIONS (2)
  - Product dose omission [Unknown]
  - Intentional product misuse [None]

NARRATIVE: CASE EVENT DATE: 20191016
